FAERS Safety Report 12875198 (Version 1)
Quarter: 2016Q4

REPORT INFORMATION
  Report Type: Spontaneous
  Country: US (occurrence: US)
  Receive Date: 20161024
  Receipt Date: 20161024
  Transmission Date: 20170207
  Serious: No
  Sender: FDA-Public Use
  Company Number: US-TAIHO ONCOLOGY INC-EU-2016-02168

PATIENT
  Age: 56 Year
  Sex: Female

DRUGS (3)
  1. LONSURF [Suspect]
     Active Substance: TIPIRACIL HYDROCHLORIDE\TRIFLURIDINE
     Indication: MALIGNANT HISTIOCYTOSIS
     Route: 048
     Dates: start: 20160726, end: 201608
  2. CALCIUM [Concomitant]
     Active Substance: CALCIUM
     Dosage: NI
  3. OXYCODONE [Concomitant]
     Active Substance: OXYCODONE
     Dosage: NI

REACTIONS (5)
  - Off label use [Recovered/Resolved]
  - Muscle spasms [Unknown]
  - Drug ineffective [Unknown]
  - Nausea [Unknown]
  - Asthenia [Unknown]

NARRATIVE: CASE EVENT DATE: 20160726
